FAERS Safety Report 21865563 (Version 2)
Quarter: 2023Q1

REPORT INFORMATION
  Report Type: Report from Study
  Country: MX (occurrence: MX)
  Receive Date: 20230116
  Receipt Date: 20230119
  Transmission Date: 20230417
  Serious: Yes (Other)
  Sender: FDA-Public Use
  Company Number: MX-002147023-NVSC2023MX008325

PATIENT
  Sex: Male
  Weight: 63 kg

DRUGS (1)
  1. COSENTYX [Suspect]
     Active Substance: SECUKINUMAB
     Indication: Psoriasis
     Dosage: 300 MG, QW (2 DF/2 PENS WEEKLY FOR 4 WEEKS)
     Route: 058
     Dates: start: 20200814

REACTIONS (5)
  - Latent autoimmune diabetes in adults [Recovering/Resolving]
  - Injection site pain [Recovered/Resolved]
  - Device defective [Unknown]
  - Needle issue [Unknown]
  - Device leakage [Unknown]

NARRATIVE: CASE EVENT DATE: 20210101
